FAERS Safety Report 12340728 (Version 1)
Quarter: 2016Q2

REPORT INFORMATION
  Report Type: Spontaneous
  Country: US (occurrence: None)
  Receive Date: 20160505
  Receipt Date: 20160505
  Transmission Date: 20160815
  Serious: Yes (Life-Threatening)
  Sender: FDA-Public Use
  Company Number: None

PATIENT
  Age: 30 Year
  Sex: Female
  Weight: 98.88 kg

DRUGS (1)
  1. MIRENA [Suspect]
     Active Substance: LEVONORGESTREL

REACTIONS (8)
  - Mood swings [None]
  - Pelvic pain [None]
  - Abdominal distension [None]
  - Headache [None]
  - Fatigue [None]
  - Abdominal pain upper [None]
  - Malaise [None]
  - Weight increased [None]

NARRATIVE: CASE EVENT DATE: 20151001
